FAERS Safety Report 7307312-2 (Version None)
Quarter: 2011Q1

REPORT INFORMATION
  Report Type: 
  Country: None (occurrence: None)
  Receive Date: 20110223
  Receipt Date: 20110215
  Transmission Date: 20110831
  Serious: No
  Sender: FDA-Public Use
  Company Number: US-US-EMD SERONO, INC.-231822J10USA

PATIENT
  Sex: Female

DRUGS (2)
  1. REBIF [Suspect]
     Indication: MULTIPLE SCLEROSIS
     Route: 058
     Dates: start: 20091125, end: 20100901
  2. REBIF [Suspect]
     Route: 058
     Dates: start: 20100101, end: 20100201

REACTIONS (6)
  - HEADACHE [None]
  - HEPATIC ENZYME INCREASED [None]
  - FEELING HOT [None]
  - INJECTION SITE HAEMORRHAGE [None]
  - PHARYNGITIS [None]
  - INFLUENZA LIKE ILLNESS [None]
